FAERS Safety Report 25833352 (Version 1)
Quarter: 2025Q3

REPORT INFORMATION
  Report Type: Spontaneous
  Country: JP (occurrence: JP)
  Receive Date: 20250922
  Receipt Date: 20250922
  Transmission Date: 20251021
  Serious: Yes (Other)
  Sender: PFIZER
  Company Number: JP-PFIZER INC-202500186353

PATIENT

DRUGS (3)
  1. CORTRIL [Suspect]
     Active Substance: HYDROCORTISONE
  2. LEVOFLOXACIN [Concomitant]
     Active Substance: LEVOFLOXACIN
  3. RUPAFIN [Concomitant]
     Active Substance: RUPATADINE FUMARATE

REACTIONS (1)
  - Renal impairment [Unknown]
